FAERS Safety Report 10195850 (Version 1)
Quarter: 2014Q2

REPORT INFORMATION
  Report Type: Spontaneous
  Country: US (occurrence: None)
  Receive Date: 20140521
  Receipt Date: 20140521
  Transmission Date: 20141212
  Serious: Yes (Other)
  Sender: FDA-Public Use
  Company Number: 20140276

PATIENT
  Age: 29 Year
  Sex: Male

DRUGS (33)
  1. DEXAMETHASONE SODIUM PHOSPHATE [Suspect]
     Indication: ADRENAL DISORDER
     Dates: start: 20101225
  2. HYDROCORTISONE [Suspect]
  3. TPN [Concomitant]
     Route: 051
  4. ASPIRIN [Concomitant]
  5. COLISTIN [Concomitant]
  6. FENTANYL [Concomitant]
  7. FLAGYL (METRONIDZAOLE) [Concomitant]
  8. FLUCONOZOLE [Concomitant]
  9. HALDOL [Concomitant]
  10. LEVOPHED (NOREPINEPHRINE) [Concomitant]
  11. NORVASC (AMLODIPINE) [Concomitant]
  12. PRECEDEX [Concomitant]
  13. SENSIPAR [Concomitant]
  14. SODIUM CHLORIDE INJECTION [Concomitant]
  15. TRICOR [Concomitant]
  16. VASOPRESSIN INJECTION [Concomitant]
  17. VERSED [Concomitant]
  18. ZOSYN [Concomitant]
  19. ZYVOX (LINEZOLID) [Concomitant]
  20. ANTIBIOTICS [Concomitant]
  21. HYDROMORPHONE [Concomitant]
  22. LORAZEPAM [Concomitant]
  23. KAYEXALATE [Concomitant]
  24. SODIUM POLYSTYRENE SULFONATE [Concomitant]
  25. CINACALCET [Concomitant]
  26. CALCIUM ACETATE [Concomitant]
  27. PHOSLO [Concomitant]
  28. TRIAZOLAM [Concomitant]
  29. FAMOTIDINE [Concomitant]
  30. PARNATE [Concomitant]
  31. GABAPENTIN [Concomitant]
  32. FENOFIBRATE [Concomitant]
  33. LISINOPRIL [Concomitant]

REACTIONS (2)
  - Disseminated intravascular coagulation [None]
  - Hepatic failure [None]
